FAERS Safety Report 15704288 (Version 1)
Quarter: 2018Q4

REPORT INFORMATION
  Report Type: Spontaneous
  Country: US (occurrence: US)
  Receive Date: 20181210
  Receipt Date: 20181210
  Transmission Date: 20190205
  Serious: Yes (Disabling)
  Sender: FDA-Public Use
  Company Number: None

PATIENT
  Age: 55 Year
  Sex: Female
  Weight: 53.1 kg

DRUGS (10)
  1. COMPOUNDED NALTREXONE [Concomitant]
  2. BORON [Concomitant]
     Active Substance: BORON
  3. MAGNESIUM GLYCINATE [Concomitant]
     Active Substance: MAGNESIUM GLYCINATE
  4. GLUTHIONE [Concomitant]
  5. KRILL OIL [Concomitant]
     Active Substance: DIETARY SUPPLEMENT
  6. ARMOUR THYROID [Concomitant]
     Active Substance: THYROID, PORCINE
  7. COMPOUNDED HYDROXOCOBALAMIN [Concomitant]
  8. MULTIVITAMIN WITH LIVER DETOX SUPPORT [Concomitant]
  9. OMNISCAN [Suspect]
     Active Substance: GADODIAMIDE
     Indication: SCAN WITH CONTRAST
     Dosage: ?          QUANTITY:10 CC^S;?
     Route: 042
  10. COMPOUNDED HRT [Concomitant]

REACTIONS (1)
  - Gadolinium deposition disease [None]

NARRATIVE: CASE EVENT DATE: 20180815
